FAERS Safety Report 5030988-X (Version None)
Quarter: 2006Q2

REPORT INFORMATION
  Report Type: 
  Country: None (occurrence: None)
  Receive Date: 20060621
  Receipt Date: 20060302
  Transmission Date: 20061013
  Serious: No
  Sender: FDA-Public Use
  Company Number: US-GLAXOSMITHKLINE-A0595901A

PATIENT
  Age: 78 Year
  Sex: Female

DRUGS (4)
  1. FLOVENT [Suspect]
     Indication: CHRONIC OBSTRUCTIVE PULMONARY DISEASE
     Route: 055
     Dates: start: 20051201
  2. SYNTHROID [Concomitant]
  3. ATROVENT [Concomitant]
  4. ALBUTEROL [Concomitant]

REACTIONS (2)
  - INSOMNIA [None]
  - MIGRAINE [None]
